FAERS Safety Report 6466242-9 (Version None)
Quarter: 2009Q4

REPORT INFORMATION
  Report Type: 
  Country: None (occurrence: None)
  Receive Date: 20091202
  Receipt Date: 20091120
  Transmission Date: 20100525
  Serious: Yes (Other)
  Sender: FDA-Public Use
  Company Number: PHHY2009FR51011

PATIENT
  Age: 64 Year
  Sex: Male

DRUGS (3)
  1. TRILEPTAL [Suspect]
     Indication: PELVIC PAIN
     Dosage: 150 MG DAILY
     Dates: start: 20091110, end: 20091117
  2. HEXASPRAY [Concomitant]
  3. RHINOCORT [Concomitant]

REACTIONS (1)
  - URINE OUTPUT DECREASED [None]
